FAERS Safety Report 20877125 (Version 1)
Quarter: 2022Q2

REPORT INFORMATION
  Report Type: Spontaneous
  Country: US (occurrence: US)
  Receive Date: 20220526
  Receipt Date: 20220526
  Transmission Date: 20220720
  Serious: No
  Sender: FDA-Public Use
  Company Number: US-PFIZER INC-202200730152

PATIENT
  Age: 64 Year
  Sex: Female

DRUGS (1)
  1. PAXLOVID [Suspect]
     Active Substance: NIRMATRELVIR\RITONAVIR
     Indication: COVID-19 treatment
     Dosage: UNK

REACTIONS (8)
  - Therapeutic response unexpected [Unknown]
  - Product taste abnormal [Unknown]
  - Taste disorder [Unknown]
  - Otosalpingitis [Unknown]
  - Ear infection [Unknown]
  - Hypoacusis [Unknown]
  - Lymphadenopathy [Unknown]
  - Breast tenderness [Unknown]
